FAERS Safety Report 9283064 (Version 1)
Quarter: 2013Q2

REPORT INFORMATION
  Report Type: Spontaneous
  Country: DK (occurrence: DK)
  Receive Date: 20130510
  Receipt Date: 20130510
  Transmission Date: 20140414
  Serious: Yes (Other)
  Sender: FDA-Public Use
  Company Number: DK-ABBOTT-13A-044-1087863-00

PATIENT
  Sex: 0

DRUGS (1)
  1. VALPROATE SODIUM [Suspect]
     Indication: MATERNAL EXPOSURE TIMING UNSPECIFIED
     Route: 064

REACTIONS (2)
  - Autism [Unknown]
  - Foetal exposure during pregnancy [Unknown]
